FAERS Safety Report 5137943-X (Version None)
Quarter: 2006Q4

REPORT INFORMATION
  Report Type: 
  Country: None (occurrence: None)
  Receive Date: 20061030
  Receipt Date: 20060315
  Transmission Date: 20070319
  Serious: No
  Sender: FDA-Public Use
  Company Number: US-GLAXOSMITHKLINE-A0598299A

PATIENT
  Age: 72 Year
  Sex: Female
  Weight: 73.6 kg

DRUGS (2)
  1. ADVAIR HFA [Suspect]
     Indication: CHRONIC OBSTRUCTIVE PULMONARY DISEASE
     Dosage: 1PUFF TWICE PER DAY
     Route: 055
     Dates: start: 20010101
  2. FLONASE [Concomitant]
     Dosage: 4SPR PER DAY
     Route: 045

REACTIONS (2)
  - CANDIDIASIS [None]
  - PHARYNGOLARYNGEAL PAIN [None]
